FAERS Safety Report 6290288-7 (Version None)
Quarter: 2009Q3

REPORT INFORMATION
  Report Type: 
  Country: None (occurrence: None)
  Receive Date: 20090730
  Receipt Date: 20090210
  Transmission Date: 20100115
  Serious: No
  Sender: FDA-Public Use
  Company Number: US-BRISTOL-MYERS SQUIBB COMPANY-14499479

PATIENT
  Age: 28 Year
  Sex: Female
  Weight: 62 kg

DRUGS (12)
  1. COUMADIN [Suspect]
     Dosage: PRESENT DOSE IS 5MG DAILY 4 TIMES A WEEK AND 2.5MG DAILY 3 TIMES A WEEK.
     Dates: start: 20090101
  2. WARFARIN SODIUM [Suspect]
  3. PREDNISONE [Concomitant]
  4. LEXAPRO [Concomitant]
  5. MYFORTIC [Concomitant]
  6. TOPROL-XL [Concomitant]
  7. NORVASC [Concomitant]
  8. AMBIEN [Concomitant]
  9. OPANA ER [Concomitant]
  10. PROCRIT [Concomitant]
  11. COLACE [Concomitant]
  12. MIRALAX [Concomitant]

REACTIONS (10)
  - ABDOMINAL DISTENSION [None]
  - BLUE TOE SYNDROME [None]
  - CHROMATURIA [None]
  - CYANOSIS [None]
  - DYSPNOEA [None]
  - HEPATIC ENZYME INCREASED [None]
  - MUSCULOSKELETAL PAIN [None]
  - PAIN IN EXTREMITY [None]
  - PYREXIA [None]
  - URINE OUTPUT DECREASED [None]
